FAERS Safety Report 9317900 (Version 1)
Quarter: 2013Q2

REPORT INFORMATION
  Report Type: Spontaneous
  Country: US (occurrence: US)
  Receive Date: 20130530
  Receipt Date: 20130530
  Transmission Date: 20140414
  Serious: No
  Sender: FDA-Public Use
  Company Number: US-GLAXOSMITHKLINE-A0994042A

PATIENT
  Age: 26 Year
  Sex: Female

DRUGS (4)
  1. VENTOLIN HFA [Suspect]
     Indication: ASTHMA
     Route: 055
  2. HUMIRA [Concomitant]
  3. PREDNISONE [Concomitant]
  4. CELEBREX [Concomitant]

REACTIONS (2)
  - Breath odour [Unknown]
  - Expired drug administered [Unknown]
